FAERS Safety Report 10100211 (Version 1)
Quarter: 2014Q2

REPORT INFORMATION
  Report Type: Spontaneous
  Country: US (occurrence: US)
  Receive Date: 20140423
  Receipt Date: 20140423
  Transmission Date: 20141212
  Serious: No
  Sender: FDA-Public Use
  Company Number: US-GILEAD-2013-0075911

PATIENT
  Sex: Female

DRUGS (5)
  1. LETAIRIS [Suspect]
     Indication: PRODUCT USED FOR UNKNOWN INDICATION
     Dates: start: 20110401
  2. REVATIO [Concomitant]
  3. ADCIRCA [Concomitant]
  4. COUMADIN [Concomitant]
  5. IRON [Suspect]

REACTIONS (1)
  - Blood pressure abnormal [Unknown]
